FAERS Safety Report 16088403 (Version 1)
Quarter: 2019Q1

REPORT INFORMATION
  Report Type: Report from Study
  Country: US (occurrence: US)
  Receive Date: 20190319
  Receipt Date: 20190319
  Transmission Date: 20190418
  Serious: Yes (Death, Hospitalization, Other)
  Sender: FDA-Public Use
  Company Number: US-BRISTOL-MYERS SQUIBB COMPANY-BMS-2019-002698

PATIENT
  Age: 60 Year
  Sex: Female
  Weight: 76.9 kg

DRUGS (2)
  1. NIVOLUMAB [Suspect]
     Active Substance: NIVOLUMAB
     Indication: NEOPLASM
     Dosage: 240 MG, Q2WK (DAY 1, 15 AND 29)
     Route: 042
     Dates: start: 20181203, end: 20181217
  2. IPILIMUMAB [Suspect]
     Active Substance: IPILIMUMAB
     Indication: NEOPLASM
     Dosage: 1 MILLIGRAM/KILOGRAM
     Route: 042
     Dates: start: 20181203, end: 20181217

REACTIONS (6)
  - Pneumonia [Unknown]
  - Tumour pain [Unknown]
  - Pleural effusion [Unknown]
  - Dehydration [Unknown]
  - Malignant neoplasm progression [Fatal]
  - Fatigue [Unknown]

NARRATIVE: CASE EVENT DATE: 20181217
